FAERS Safety Report 8006199-2 (Version None)
Quarter: 2011Q4

REPORT INFORMATION
  Report Type: 
  Country: None (occurrence: None)
  Receive Date: 20111226
  Receipt Date: 20111212
  Transmission Date: 20120403
  Serious: Yes (Hospitalization)
  Sender: FDA-Public Use
  Company Number: PHFR2011GB04375

PATIENT
  Sex: Male

DRUGS (4)
  1. CLOZARIL [Suspect]
     Dosage: 250 MG/DAY
     Route: 048
     Dates: start: 20110902
  2. CLOZARIL [Suspect]
     Indication: SCHIZOPHRENIA
     Dosage: 350 MG/DAY
     Route: 048
     Dates: start: 20061106
  3. CLOZARIL [Suspect]
     Dosage: 300 MG/DAY
     Dates: start: 20110904
  4. CLOZARIL [Suspect]
     Dosage: 250 MG/DAY
     Dates: start: 20110903

REACTIONS (2)
  - SOMNOLENCE [None]
  - OVERDOSE [None]
